FAERS Safety Report 4644506-9 (Version None)
Quarter: 2005Q2

REPORT INFORMATION
  Report Type: 
  Country: None (occurrence: None)
  Receive Date: 20050422
  Receipt Date: 20050407
  Transmission Date: 20051028
  Serious: Yes (Death)
  Sender: FDA-Public Use
  Company Number: SGB1-2005-00091

PATIENT
  Sex: 0

DRUGS (1)
  1. ANAGRELIDE HYDROCHLORIDE (ANAGRELIDE HYDROCHLORIDE)CAPSULE [Suspect]
     Indication: ESSENTIAL THROMBOCYTHAEMIA

REACTIONS (1)
  - ISCHAEMIC STROKE [None]
